FAERS Safety Report 24063967 (Version 1)
Quarter: 2024Q3

REPORT INFORMATION
  Report Type: Spontaneous
  Country: DE (occurrence: DE)
  Receive Date: 20240709
  Receipt Date: 20240709
  Transmission Date: 20241016
  Serious: Yes (Hospitalization, Disabling)
  Sender: MACLEODS
  Company Number: DE-MLMSERVICE-20240624-PI104555-00290-2

PATIENT

DRUGS (18)
  1. LIDOCAINE [Suspect]
     Active Substance: LIDOCAINE
     Indication: Epidural catheter placement
     Dosage: TOTAL
     Route: 008
  2. ROPIVACAINE [Suspect]
     Active Substance: ROPIVACAINE
     Indication: Epidural anaesthesia
     Dosage: LOADING DOSE
     Route: 008
  3. ROPIVACAINE [Suspect]
     Active Substance: ROPIVACAINE
     Dosage: 0.2 %, AT FLOW RATES OF 8 AND 10 ML/HOUR
     Route: 008
  4. ROPIVACAINE [Suspect]
     Active Substance: ROPIVACAINE
     Dosage: AT FLOW RATES OF 8 AND 10 ML/HOUR CONTINUOUSLY INFUSED
     Route: 008
  5. PROPOFOL [Concomitant]
     Active Substance: PROPOFOL
     Route: 065
  6. PROPOFOL [Concomitant]
     Active Substance: PROPOFOL
  7. SPIRONOLACTONE [Concomitant]
     Active Substance: SPIRONOLACTONE
     Indication: Product used for unknown indication
     Dosage: 25 MG THREE TIMES A WEEK
     Route: 065
  8. CANDESARTAN [Concomitant]
     Active Substance: CANDESARTAN
     Indication: Product used for unknown indication
     Route: 065
  9. PANTOPRAZOLE [Concomitant]
     Active Substance: PANTOPRAZOLE
     Indication: Product used for unknown indication
     Route: 065
  10. NOREPINEPHRINE [Concomitant]
     Active Substance: NOREPINEPHRINE\NOREPINEPHRINE BITARTRATE
     Indication: Product used for unknown indication
     Dosage: UP TO 0.06 UG/KG/MIN
     Route: 065
  11. CHOLECALCIFEROL [Concomitant]
     Active Substance: CHOLECALCIFEROL
     Indication: Product used for unknown indication
     Route: 065
  12. ATORVASTATIN [Concomitant]
     Active Substance: ATORVASTATIN
     Indication: Product used for unknown indication
     Route: 065
  13. SUFENTANIL [Concomitant]
     Active Substance: SUFENTANIL
     Route: 065
  14. SUFENTANIL [Concomitant]
     Active Substance: SUFENTANIL
  15. LEVOTHYROXINE [Concomitant]
     Active Substance: LEVOTHYROXINE\LEVOTHYROXINE SODIUM
     Indication: Product used for unknown indication
     Route: 065
  16. INSULIN NOS [Concomitant]
     Active Substance: INSULIN NOS
     Dosage: VIA PUMP SYSTEM
     Route: 058
  17. ROCURONIUM [Concomitant]
     Active Substance: ROCURONIUM BROMIDE
     Route: 065
  18. ROCURONIUM [Concomitant]
     Active Substance: ROCURONIUM BROMIDE

REACTIONS (5)
  - Spinal cord compression [Recovering/Resolving]
  - Paraparesis [Recovering/Resolving]
  - Paraplegia [Recovering/Resolving]
  - Spinal cord injury thoracic [Recovering/Resolving]
  - Sensorimotor disorder [Recovering/Resolving]
